FAERS Safety Report 10659088 (Version 1)
Quarter: 2014Q4

REPORT INFORMATION
  Report Type: Spontaneous
  Country: US (occurrence: None)
  Receive Date: 20141209
  Receipt Date: 20141209
  Transmission Date: 20150529
  Serious: Yes (Other)
  Sender: FDA-Public Use
  Company Number: 411998

PATIENT
  Age: 74 Year
  Sex: Female
  Weight: 81.6 kg

DRUGS (11)
  1. RAMIPRIL(RAMIPRIL) [Concomitant]
  2. CREON(PANCREATIN) [Concomitant]
  3. HYDROCODONE/ACETAMINOPHEN/(HYDROCODONE BITARTRATE, PARACETAMOL) [Concomitant]
  4. LEVOTHYROXINE(LEVOTHYROXINE) [Concomitant]
  5. DILTIAZEM(DILTAZEM) [Concomitant]
  6. NEURONTIN(GABAPENTIN) [Concomitant]
  7. NOVOLOG [Suspect]
     Active Substance: INSULIN ASPART
     Indication: TYPE 1 DIABETES MELLITUS
     Dosage: SLIDING SCALE, SUBCUTANEOUS
     Route: 058
     Dates: start: 2008
  8. PROCRIT/00909301/(ERYTHROPOIETIN) [Concomitant]
  9. ATORVASTATIN(ATORVASTATIN) [Concomitant]
  10. SPIRIVA(TIOTROPIUM BROMIDE) [Concomitant]
  11. ASPIRIN(ACETYLSALICYLIC ACID) [Concomitant]
     Active Substance: ASPIRIN

REACTIONS (2)
  - Drug dispensing error [None]
  - Hypocalcaemic seizure [None]

NARRATIVE: CASE EVENT DATE: 20140515
